FAERS Safety Report 7767985-7 (Version None)
Quarter: 2011Q3

REPORT INFORMATION
  Report Type: 
  Country: None (occurrence: None)
  Receive Date: 20110922
  Receipt Date: 20110104
  Transmission Date: 20111222
  Serious: No
  Sender: FDA-Public Use
  Company Number: US-ASTRAZENECA-2011SE00501

PATIENT
  Age: 40 Year
  Sex: Male

DRUGS (8)
  1. SEROQUEL XR [Suspect]
     Indication: BIPOLAR DISORDER
     Dosage: TOTAL DAILY DOSE: 400 MG
     Route: 048
     Dates: start: 20090101, end: 20090501
  2. SEROQUEL XR [Suspect]
     Route: 048
  3. LEXAPRO [Concomitant]
  4. KLONOPIN [Concomitant]
     Indication: ANXIETY
  5. SEROQUEL XR [Suspect]
     Route: 048
     Dates: start: 20100101
  6. SEROQUEL XR [Suspect]
     Route: 048
  7. SEROQUEL XR [Suspect]
     Route: 048
  8. WELLBUTRIN [Concomitant]

REACTIONS (6)
  - MEMORY IMPAIRMENT [None]
  - WEIGHT INCREASED [None]
  - HUNGER [None]
  - HEADACHE [None]
  - APHASIA [None]
  - DRY MOUTH [None]
